FAERS Safety Report 18844942 (Version 4)
Quarter: 2021Q1

REPORT INFORMATION
  Report Type: Spontaneous
  Country: US (occurrence: US)
  Receive Date: 20210204
  Receipt Date: 20210323
  Transmission Date: 20210419
  Serious: Yes (Hospitalization, Other)
  Sender: FDA-Public Use
  Company Number: US-ALLERGAN-2105001US

PATIENT
  Sex: Male

DRUGS (9)
  1. DOLUTEGRAVIR/ LAMIVUDINE [Concomitant]
     Indication: HIV INFECTION
     Dosage: 50MG/300MG
  2. LEVOTHYROXINE. [Concomitant]
     Active Substance: LEVOTHYROXINE
     Indication: HYPOTHYROIDISM
     Dosage: 137 MCG DAILY
  3. GABAPENTIN. [Concomitant]
     Active Substance: GABAPENTIN
     Dosage: 1500 MG: 300 MG AM/NOON AND 900 MG AT NIGHT
  4. SUMATRIPTAN. [Concomitant]
     Active Substance: SUMATRIPTAN
     Indication: MIGRAINE
     Dosage: UNK, PRN
  5. ACYCLOVIR. [Concomitant]
     Active Substance: ACYCLOVIR
     Dosage: 1000 MG, BID
  6. VENLAFAXIN [Concomitant]
     Active Substance: VENLAFAXINE HYDROCHLORIDE
     Indication: DEPRESSION
     Dosage: 75 MG/3 CAPSULES (225 MG)
  7. BOTOX [Suspect]
     Active Substance: ONABOTULINUMTOXINA
     Indication: MIGRAINE
     Dosage: 155 UNITS, SINGLE
     Dates: start: 20210113, end: 20210113
  8. TYLENOL [Concomitant]
     Active Substance: ACETAMINOPHEN
     Dosage: 500 MG TWICE A WEEK/PRN
  9. MIRTAZAPINE. [Concomitant]
     Active Substance: MIRTAZAPINE
     Indication: DEPRESSION
     Dosage: 30 MG

REACTIONS (16)
  - Pharyngitis [Recovering/Resolving]
  - Cellulitis [Recovered/Resolved]
  - Headache [Unknown]
  - Neck pain [Recovering/Resolving]
  - Migraine [Unknown]
  - Pain in jaw [Recovering/Resolving]
  - Hepatitis C [Recovered/Resolved]
  - Lymphadenopathy [Recovering/Resolving]
  - Pyrexia [Recovering/Resolving]
  - Tonsillitis [Recovering/Resolving]
  - Viral infection [Recovering/Resolving]
  - Swelling [Recovering/Resolving]
  - Ludwig angina [Not Recovered/Not Resolved]
  - Feeling hot [Recovering/Resolving]
  - Treponema test positive [Recovering/Resolving]
  - Facial pain [Recovering/Resolving]

NARRATIVE: CASE EVENT DATE: 20210113
